FAERS Safety Report 16697724 (Version 1)
Quarter: 2019Q3

REPORT INFORMATION
  Report Type: Spontaneous
  Country: US (occurrence: US)
  Receive Date: 20190626
  Receipt Date: 20190626
  Transmission Date: 20191004
  Serious: Yes (Hospitalization)
  Sender: FDA-Public Use
  Company Number: None

PATIENT
  Age: 65 Year
  Sex: Female

DRUGS (5)
  1. ALPRAZOLAM. [Concomitant]
     Active Substance: ALPRAZOLAM
  2. PANTOPRAZOLE [Concomitant]
     Active Substance: PANTOPRAZOLE
  3. POT CL MICRO [Concomitant]
  4. DULOXETINE. [Concomitant]
     Active Substance: DULOXETINE
  5. FORTEO [Suspect]
     Active Substance: TERIPARATIDE
     Indication: BONE DENSITY ABNORMAL
     Route: 058
     Dates: start: 20190203

REACTIONS (2)
  - Therapy cessation [None]
  - Knee arthroplasty [None]

NARRATIVE: CASE EVENT DATE: 20190618
